FAERS Safety Report 8809398 (Version 4)
Quarter: 2012Q4

REPORT INFORMATION
  Report Type: Report from Study
  Country: US (occurrence: US)
  Receive Date: 20120926
  Receipt Date: 20121217
  Transmission Date: 20130627
  Serious: Yes (Disabling)
  Sender: FDA-Public Use
  Company Number: US-JNJFOC-20120908263

PATIENT
  Age: 59 Year
  Sex: Female
  Weight: 73.03 kg

DRUGS (2)
  1. STELARA [Suspect]
     Indication: PSORIASIS
     Route: 058
     Dates: start: 201203, end: 201206
  2. STELARA [Suspect]
     Indication: PSORIASIS
     Route: 058
     Dates: start: 201005

REACTIONS (2)
  - Neuritis [Not Recovered/Not Resolved]
  - Macular fibrosis [Recovered/Resolved with Sequelae]
